FAERS Safety Report 6535549-9 (Version None)
Quarter: 2009Q4

REPORT INFORMATION
  Report Type: 
  Country: None (occurrence: None)
  Receive Date: 20091228
  Receipt Date: 20090305
  Transmission Date: 20100525
  Serious: Yes (Other)
  Sender: FDA-Public Use
  Company Number: US-002575

PATIENT
  Age: 83 Year
  Sex: Female

DRUGS (2)
  1. MULTIHANCE [Suspect]
     Indication: CEREBROVASCULAR ACCIDENT
     Dosage: 30ML QD INTRAVENOUS
     Route: 042
     Dates: start: 20090221, end: 20090221
  2. MULTIHANCE [Suspect]
     Indication: NUCLEAR MAGNETIC RESONANCE IMAGING
     Dosage: 30ML QD INTRAVENOUS
     Route: 042
     Dates: start: 20090221, end: 20090221

REACTIONS (1)
  - HYPERSENSITIVITY [None]
